FAERS Safety Report 21145988 (Version 1)
Quarter: 2022Q3

REPORT INFORMATION
  Report Type: Spontaneous
  Country: US (occurrence: US)
  Receive Date: 20220729
  Receipt Date: 20220729
  Transmission Date: 20221027
  Serious: No
  Sender: FDA-Public Use
  Company Number: US-ORGANON-O2207USA001418

PATIENT
  Age: 17 Year
  Sex: Female

DRUGS (13)
  1. REMERON [Suspect]
     Active Substance: MIRTAZAPINE
     Indication: Gastrointestinal motility disorder
     Dosage: UNK
  2. APREPITANT [Concomitant]
     Active Substance: APREPITANT
     Indication: Gastrointestinal motility disorder
     Dosage: UNK
  3. PROCHLORPERAZINE [Concomitant]
     Active Substance: PROCHLORPERAZINE
     Indication: Gastrointestinal motility disorder
     Dosage: UNK
  4. ONDANSETRON [Concomitant]
     Active Substance: ONDANSETRON
     Indication: Gastrointestinal motility disorder
     Dosage: UNK
  5. LORAZEPAM [Concomitant]
     Active Substance: LORAZEPAM
     Indication: Gastrointestinal motility disorder
     Dosage: UNK
  6. CLONAZEPAM [Concomitant]
     Active Substance: CLONAZEPAM
     Indication: Gastrointestinal motility disorder
     Dosage: UNK
  7. SCOPOLAMINE [Concomitant]
     Active Substance: SCOPOLAMINE
     Indication: Gastrointestinal motility disorder
     Dosage: UNK
  8. AZITHROMYCIN [Concomitant]
     Active Substance: AZITHROMYCIN
     Indication: Gastrointestinal motility disorder
     Dosage: UNK
  9. CYPROHEPTADINE [Concomitant]
     Active Substance: CYPROHEPTADINE
     Indication: Gastrointestinal motility disorder
     Dosage: UNK
  10. PRUCALOPRIDE [Concomitant]
     Active Substance: PRUCALOPRIDE
     Indication: Gastrointestinal motility disorder
     Dosage: UNK
  11. AMITRIPTYLINE [Concomitant]
     Active Substance: AMITRIPTYLINE
     Indication: Gastrointestinal motility disorder
     Dosage: UNK
  12. GABAPENTIN [Concomitant]
     Active Substance: GABAPENTIN
     Indication: Gastrointestinal motility disorder
     Dosage: UNK
  13. BOTULINUM TOXIN NOS [Concomitant]
     Active Substance: BOTULINUM TOXIN NOS
     Indication: Gastrointestinal motility disorder
     Dosage: TO THE PYLORUS

REACTIONS (1)
  - Product use in unapproved indication [Unknown]
